FAERS Safety Report 7304372-X (Version None)
Quarter: 2011Q1

REPORT INFORMATION
  Report Type: 
  Country: None (occurrence: None)
  Receive Date: 20110221
  Receipt Date: 20110210
  Transmission Date: 20110831
  Serious: Yes (Hospitalization)
  Sender: FDA-Public Use
  Company Number: US-ASTRAZENECA-2011SE08224

PATIENT
  Sex: Female

DRUGS (1)
  1. SEROQUEL XR [Suspect]
     Route: 048

REACTIONS (9)
  - SURGERY [None]
  - PANIC ATTACK [None]
  - CEREBROVASCULAR ACCIDENT [None]
  - SEPSIS [None]
  - SOMNOLENCE [None]
  - PULMONARY EMBOLISM [None]
  - FLASHBACK [None]
  - ACUTE RESPIRATORY DISTRESS SYNDROME [None]
  - FEELING ABNORMAL [None]
